FAERS Safety Report 13728449 (Version 1)
Quarter: 2017Q3

REPORT INFORMATION
  Report Type: Spontaneous
  Country: US (occurrence: US)
  Receive Date: 20170706
  Receipt Date: 20170706
  Transmission Date: 20171127
  Serious: No
  Sender: FDA-Public Use
  Company Number: None

PATIENT
  Age: 51 Year
  Sex: Male

DRUGS (1)
  1. AMPYRA [Suspect]
     Active Substance: DALFAMPRIDINE
     Indication: MULTIPLE SCLEROSIS
     Route: 048
     Dates: start: 20100614

REACTIONS (12)
  - Protein urine present [None]
  - Urine leukocyte esterase positive [None]
  - Lymphocyte count decreased [None]
  - White blood cells urine positive [None]
  - Bacterial test positive [None]
  - Klebsiella infection [None]
  - Pyrexia [None]
  - Urinary tract infection [None]
  - Nitrite urine present [None]
  - Haemoglobin urine present [None]
  - Asthenia [None]
  - Haematocrit decreased [None]

NARRATIVE: CASE EVENT DATE: 20170624
